FAERS Safety Report 12824279 (Version 1)
Quarter: 2016Q4

REPORT INFORMATION
  Report Type: Report from Study
  Country: US (occurrence: US)
  Receive Date: 20161006
  Receipt Date: 20161006
  Transmission Date: 20170207
  Serious: No
  Sender: FDA-Public Use
  Company Number: US-AMGEN-USASL2016096501

PATIENT
  Age: 63 Year
  Sex: Female

DRUGS (2)
  1. PROLIA [Suspect]
     Active Substance: DENOSUMAB
     Indication: PRODUCT USED FOR UNKNOWN INDICATION
     Dosage: UNK
     Route: 065
  2. AZATHIOPRINE. [Concomitant]
     Active Substance: AZATHIOPRINE
     Indication: CROHN^S DISEASE
     Dosage: 3 TABLETS ,UNK

REACTIONS (9)
  - Malaise [Unknown]
  - Platelet count increased [Unknown]
  - Nausea [Unknown]
  - White blood cell count decreased [Unknown]
  - Spinal pain [Unknown]
  - Hepatic enzyme abnormal [Recovered/Resolved]
  - Abdominal distension [Unknown]
  - Arthralgia [Unknown]
  - Headache [Unknown]
